FAERS Safety Report 7988685-4 (Version None)
Quarter: 2011Q4

REPORT INFORMATION
  Report Type: 
  Country: None (occurrence: None)
  Receive Date: 20111218
  Receipt Date: 20111207
  Transmission Date: 20120403
  Serious: Yes (Death)
  Sender: FDA-Public Use
  Company Number: DE-ELI_LILLY_AND_COMPANY-DE201111007123

PATIENT
  Age: 51 Year
  Sex: Male

DRUGS (5)
  1. CYMBALTA [Suspect]
     Indication: DEPRESSION
     Dosage: 120 MG, UNKNOWN
  2. NEUROCIL [Concomitant]
     Dosage: 25MG UNIQUELY BEFORE THE EVENT
  3. LORAZEPAM [Concomitant]
  4. HALOPERIDOL [Concomitant]
     Dosage: 7 MG, UNK
  5. OLANZAPINE [Suspect]
     Indication: SCHIZOAFFECTIVE DISORDER
     Dosage: 405 MG, EVERY FOUR WEEKS
     Route: 030

REACTIONS (2)
  - COMPLETED SUICIDE [None]
  - DROWNING [None]
